FAERS Safety Report 5321218-X (Version None)
Quarter: 2007Q2

REPORT INFORMATION
  Report Type: 
  Country: None (occurrence: None)
  Receive Date: 20070510
  Receipt Date: 20070501
  Transmission Date: 20071010
  Serious: Yes (Other)
  Sender: FDA-Public Use
  Company Number: GB-AVENTIS-200621425GDDC

PATIENT
  Age: 5 Day
  Sex: Female
  Weight: 3.38 kg

DRUGS (1)
  1. METRONIDAZOLE [Suspect]
     Route: 042
     Dates: start: 20060810, end: 20060810

REACTIONS (3)
  - DRUG ADMINISTRATION ERROR [None]
  - HYPOXIC ENCEPHALOPATHY [None]
  - METABOLIC ACIDOSIS [None]
